FAERS Safety Report 12267286 (Version 1)
Quarter: 2016Q2

REPORT INFORMATION
  Report Type: Report from Study
  Country: BR (occurrence: BR)
  Receive Date: 20160414
  Receipt Date: 20160414
  Transmission Date: 20160815
  Serious: Yes (Other)
  Sender: FDA-Public Use
  Company Number: PHHY2016BR048803

PATIENT
  Sex: Female
  Weight: 82 kg

DRUGS (2)
  1. EXELON PATCH [Suspect]
     Active Substance: RIVASTIGMINE
     Indication: CEREBRAL DISORDER
     Dosage: 4.6 MG, (PATCH 5 CM2), QD
     Route: 062
     Dates: start: 20150908
  2. EXELON PATCH [Suspect]
     Active Substance: RIVASTIGMINE
     Dosage: 9.5 MG, (PATCH 10 CM2), QD
     Route: 062

REACTIONS (2)
  - Urinary incontinence [Unknown]
  - Product use issue [Unknown]
